FAERS Safety Report 4557220-5 (Version None)
Quarter: 2005Q1

REPORT INFORMATION
  Report Type: 
  Country: None (occurrence: None)
  Receive Date: 20050118
  Receipt Date: 20050107
  Transmission Date: 20050727
  Serious: Yes (Hospitalization)
  Sender: FDA-Public Use
  Company Number: 032-0981-990260

PATIENT
  Age: 67 Year
  Sex: Female
  Weight: 101.9 kg

DRUGS (6)
  1. ATORVASTATIN (ATORVASTATIN) [Suspect]
     Indication: CORONARY ARTERY DISEASE
     Dosage: 10 MG (DAILY), ORAL
     Route: 048
     Dates: start: 19980928, end: 19981124
  2. ATORVASTATIN (ATORVASTATIN) [Suspect]
     Indication: CORONARY ARTERY DISEASE
     Dosage: 10 MG (DAILY), ORAL
     Route: 048
     Dates: start: 19981125
  3. ASPIRIN [Concomitant]
  4. METOPROLOL TARTRATE [Concomitant]
  5. FUROSEMIDE [Concomitant]
  6. CAPTOPRIL [Concomitant]

REACTIONS (3)
  - DUODENITIS [None]
  - GASTRITIS [None]
  - OESOPHAGITIS [None]
